FAERS Safety Report 4312615-X (Version None)
Quarter: 2004Q1

REPORT INFORMATION
  Report Type: 
  Country: None (occurrence: None)
  Receive Date: 20040302
  Receipt Date: 20031218
  Transmission Date: 20041129
  Serious: No
  Sender: FDA-Public Use
  Company Number: 200330535BWH

PATIENT
  Sex: Male

DRUGS (2)
  1. LEVITRA [Suspect]
     Indication: ERECTILE DYSFUNCTION
     Dosage: 10 MG TOTAL DAILY ORAL, 20 MG TOTAL DAILY ORAL
     Route: 048
     Dates: start: 20031201
  2. LEVITRA [Suspect]
     Indication: ERECTILE DYSFUNCTION
     Dosage: 10 MG TOTAL DAILY ORAL, 20 MG TOTAL DAILY ORAL
     Route: 048
     Dates: start: 20031216

REACTIONS (3)
  - DYSPNOEA [None]
  - ERECTILE DYSFUNCTION [None]
  - GASTROOESOPHAGEAL REFLUX DISEASE [None]
